FAERS Safety Report 5703781-X (Version None)
Quarter: 2008Q2

REPORT INFORMATION
  Report Type: 
  Country: None (occurrence: None)
  Receive Date: 20080414
  Receipt Date: 20080407
  Transmission Date: 20081010
  Serious: Yes (Hospitalization)
  Sender: FDA-Public Use
  Company Number: FR-WYE-G01360608

PATIENT
  Age: 35 Year
  Sex: Female

DRUGS (6)
  1. RHINADVIL [Suspect]
     Dosage: UNKNOWN
     Route: 048
     Dates: start: 20071108, end: 20071110
  2. STREPSILS [Concomitant]
     Dosage: UNKNOWN
     Route: 048
  3. AUGMENTIN '125' [Suspect]
     Route: 048
     Dates: start: 20071111
  4. VAGOSTABYL [Concomitant]
     Dosage: UNKNOWN
     Route: 048
  5. DAFALGAN [Concomitant]
     Dosage: UNKNOWN
     Route: 048
  6. RHINOFLUIMUCIL [Concomitant]
     Dosage: UNKNOWN
     Route: 045

REACTIONS (3)
  - PYREXIA [None]
  - RASH MACULO-PAPULAR [None]
  - TOXIC SKIN ERUPTION [None]
